FAERS Safety Report 8114177-8 (Version None)
Quarter: 2012Q1

REPORT INFORMATION
  Report Type: 
  Country: None (occurrence: None)
  Receive Date: 20120205
  Receipt Date: 20120126
  Transmission Date: 20120608
  Serious: Yes (Hospitalization, Other)
  Sender: FDA-Public Use
  Company Number: PHHY2012GB007006

PATIENT
  Age: 58 Year
  Sex: Male

DRUGS (6)
  1. CODEINE PHOSPHATE [Suspect]
     Dates: start: 20111109
  2. DIAZEPAM [Suspect]
     Dates: start: 20111109
  3. TRAMADOL HCL [Suspect]
     Route: 048
     Dates: start: 20111109
  4. DURAGESIC-100 [Suspect]
     Dosage: 50 UG/HR, UNK
     Route: 048
     Dates: start: 20111109
  5. ORAMORPH SR [Suspect]
     Indication: PAIN
     Dates: start: 20111109
  6. HYDROCODONE BITARTRATE [Suspect]
     Dates: start: 20111109

REACTIONS (4)
  - INTENTIONAL DRUG MISUSE [None]
  - WRONG TECHNIQUE IN DRUG USAGE PROCESS [None]
  - DEPRESSION [None]
  - MULTIPLE DRUG OVERDOSE [None]
